FAERS Safety Report 9372050 (Version 1)
Quarter: 2013Q2

REPORT INFORMATION
  Report Type: Report from Study
  Country: US (occurrence: US)
  Receive Date: 20130627
  Receipt Date: 20130627
  Transmission Date: 20140414
  Serious: Yes (Death)
  Sender: FDA-Public Use
  Company Number: US-MYLANLABS-2012S1013683

PATIENT
  Age: 32 Year
  Sex: Male

DRUGS (6)
  1. CLOZAPINE TABLETS [Suspect]
     Route: 048
     Dates: start: 20120525, end: 201206
  2. XANAX [Concomitant]
     Route: 048
  3. SEROQUEL [Concomitant]
     Route: 048
  4. ESCITALOPRAM [Concomitant]
     Route: 048
  5. BENZOTROPINE [Concomitant]
     Route: 048
  6. PANTOPRAZOLE [Concomitant]
     Route: 048

REACTIONS (1)
  - Death [Fatal]
